FAERS Safety Report 6137201-0 (Version None)
Quarter: 2009Q1

REPORT INFORMATION
  Report Type: 
  Country: None (occurrence: None)
  Receive Date: 20090330
  Receipt Date: 20090319
  Transmission Date: 20090719
  Serious: Yes (Hospitalization)
  Sender: FDA-Public Use
  Company Number: JP-SANOFI-SYNTHELABO-A01200902982

PATIENT
  Sex: Male
  Weight: 55 kg

DRUGS (4)
  1. FLUOROURACIL [Suspect]
     Dosage: IV BOLUS THEN CONTINOUS INFUSION UNK
     Route: 042
  2. CALCIUM LEVOFOLINATE [Suspect]
     Dosage: UNK
     Route: 041
  3. ELPLAT [Suspect]
     Indication: COLON CANCER
     Dosage: UNK
     Route: 041
  4. AZD2171 [Concomitant]
     Indication: COLON CANCER
     Dosage: UNK
     Route: 048
     Dates: start: 20080422, end: 20081224

REACTIONS (1)
  - CHOLECYSTITIS ACUTE [None]
